FAERS Safety Report 18873023 (Version 2)
Quarter: 2021Q2

REPORT INFORMATION
  Report Type: Spontaneous
  Country: US (occurrence: US)
  Receive Date: 20210210
  Receipt Date: 20210510
  Transmission Date: 20210717
  Serious: Yes (Other)
  Sender: FDA-Public Use
  Company Number: US-GILEAD-2021-0515759

PATIENT
  Age: 64 Year
  Sex: Female

DRUGS (3)
  1. VIREAD [Suspect]
     Active Substance: TENOFOVIR DISOPROXIL FUMARATE
     Indication: HIV INFECTION
     Dosage: UNK
     Route: 048
     Dates: start: 200801, end: 200912
  2. TRUVADA [Suspect]
     Active Substance: EMTRICITABINE\TENOFOVIR DISOPROXIL FUMARATE
     Indication: HIV INFECTION
     Dosage: UNK
     Route: 048
     Dates: start: 200801, end: 200912
  3. TRUVADA [Suspect]
     Active Substance: EMTRICITABINE\TENOFOVIR DISOPROXIL FUMARATE
     Dosage: UNK
     Route: 048
     Dates: start: 20090313, end: 2015

REACTIONS (13)
  - Tibia fracture [Recovered/Resolved]
  - Osteonecrosis [Unknown]
  - Osteoporosis [Unknown]
  - Anxiety [Unknown]
  - Bone density decreased [Recovered/Resolved]
  - Bone loss [Unknown]
  - Pain [Unknown]
  - Emotional distress [Unknown]
  - Osteopenia [Not Recovered/Not Resolved]
  - Tooth loss [Unknown]
  - Multiple fractures [Unknown]
  - Chronic kidney disease [Unknown]
  - Anhedonia [Unknown]

NARRATIVE: CASE EVENT DATE: 20141107
